FAERS Safety Report 15260933 (Version 1)
Quarter: 2018Q3

REPORT INFORMATION
  Report Type: Spontaneous
  Country: US (occurrence: US)
  Receive Date: 20180719
  Receipt Date: 20180719
  Transmission Date: 20181010
  Serious: Yes (Other)
  Sender: FDA-Public Use
  Company Number: None

PATIENT
  Age: 75 Year
  Sex: Male
  Weight: 74.84 kg

DRUGS (1)
  1. FLUOROURACIL 5% CREAM [Suspect]
     Active Substance: FLUOROURACIL
     Indication: ACTINIC KERATOSIS
     Dosage: ?          OTHER ROUTE:FACE FOR 14 DAYS?
     Route: 061
     Dates: start: 20180609, end: 20180621

REACTIONS (4)
  - Application site scab [None]
  - Face oedema [None]
  - Application site erythema [None]
  - Cerebrovascular accident [None]

NARRATIVE: CASE EVENT DATE: 20180622
